FAERS Safety Report 6596850-6 (Version None)
Quarter: 2010Q1

REPORT INFORMATION
  Report Type: 
  Country: None (occurrence: None)
  Receive Date: 20100222
  Receipt Date: 20100222
  Transmission Date: 20100710
  Serious: Yes (Other)
  Sender: FDA-Public Use
  Company Number: None

PATIENT
  Age: 60 Year
  Sex: Female
  Weight: 63.5036 kg

DRUGS (2)
  1. BUPROPION HCL [Suspect]
     Indication: DEPRESSION
     Dosage: ONE TABLET ONCE A DAY PO
     Route: 048
     Dates: start: 20050101
  2. BUPROPION HCL [Suspect]
     Indication: DEPRESSION
     Dosage: ONE TABLET ONCE A DAY PO
     Route: 048
     Dates: start: 20060101

REACTIONS (8)
  - EAR PRURITUS [None]
  - ECONOMIC PROBLEM [None]
  - ERYTHEMA [None]
  - INSOMNIA [None]
  - PAIN OF SKIN [None]
  - PRURITUS GENERALISED [None]
  - SECRETION DISCHARGE [None]
  - TREATMENT FAILURE [None]
